FAERS Safety Report 9162818 (Version 2)
Quarter: 2014Q4

REPORT INFORMATION
  Report Type: Spontaneous
  Country: US (occurrence: US)
  Receive Date: 20130314
  Receipt Date: 20141114
  Transmission Date: 20150529
  Serious: Yes (Death, Hospitalization)
  Sender: FDA-Public Use
  Company Number: US-INCYTE CORPORATION-2013IN000469

PATIENT
  Age: 61 Year
  Sex: Male

DRUGS (2)
  1. LINAGLIPTIN [Concomitant]
     Active Substance: LINAGLIPTIN
  2. JAKAFI [Suspect]
     Active Substance: RUXOLITINIB
     Indication: MYELOFIBROSIS
     Dosage: 20 MG, BID
     Route: 065

REACTIONS (11)
  - Peripheral swelling [Unknown]
  - Disseminated intravascular coagulation [Unknown]
  - Granuloma [Unknown]
  - Drug withdrawal syndrome [Unknown]
  - Oedema [Unknown]
  - Drug eruption [Unknown]
  - Anaemia [Unknown]
  - Systemic inflammatory response syndrome [Unknown]
  - Death [Fatal]
  - Dermatitis exfoliative [Recovering/Resolving]
  - Dyspnoea [Unknown]
